FAERS Safety Report 9271811 (Version 1)
Quarter: 2013Q2

REPORT INFORMATION
  Report Type: Spontaneous
  Country: US (occurrence: US)
  Receive Date: 20130506
  Receipt Date: 20130506
  Transmission Date: 20140414
  Serious: Yes (Hospitalization, Other)
  Sender: FDA-Public Use
  Company Number: US-COVIDIEN/TYCO HEALTHCARE/MALLINCKRODT-T201301765

PATIENT
  Age: 53 Year
  Sex: Female

DRUGS (4)
  1. GABLOFEN [Suspect]
     Indication: MUSCLE SPASTICITY
     Dosage: ^100^
     Route: 037
  2. GABLOFEN [Suspect]
     Dosage: 57 MCG/DAY
  3. GABLOFEN [Suspect]
     Dosage: 45 MCG/DAY
  4. GABLOFEN [Suspect]
     Dosage: 24MCG/DAY

REACTIONS (12)
  - Hypersensitivity [Recovered/Resolved]
  - Coma [Recovered/Resolved]
  - Overdose [Recovered/Resolved]
  - Quality of life decreased [Recovered/Resolved]
  - Activities of daily living impaired [Recovered/Resolved]
  - Tinnitus [Recovered/Resolved]
  - Vision blurred [Recovered/Resolved]
  - Decreased appetite [Recovered/Resolved]
  - Insomnia [Recovered/Resolved]
  - Nausea [Recovered/Resolved]
  - Depression [Recovered/Resolved]
  - Drug ineffective [Recovered/Resolved]
